FAERS Safety Report 25573566 (Version 1)
Quarter: 2025Q3

REPORT INFORMATION
  Report Type: Spontaneous
  Country: US (occurrence: None)
  Receive Date: 20250717
  Receipt Date: 20250717
  Transmission Date: 20251020
  Serious: No
  Sender: FDA-CTU
  Company Number: None

PATIENT

DRUGS (1)
  1. OPSUMIT [Suspect]
     Active Substance: MACITENTAN

REACTIONS (20)
  - COVID-19 [None]
  - Thrombosis [None]
  - Neoplasm malignant [None]
  - Pulmonary pain [None]
  - Post procedural infection [None]
  - Influenza like illness [None]
  - Pruritus [None]
  - Feeling abnormal [None]
  - Decreased interest [None]
  - Asthenia [None]
  - Depressed mood [None]
  - Feeling of despair [None]
  - Initial insomnia [None]
  - Decreased appetite [None]
  - Restlessness [None]
  - Formication [None]
  - Product dose omission in error [None]
  - Product use issue [None]
  - Dyspepsia [None]
  - Depression [None]
